FAERS Safety Report 8421567-2 (Version None)
Quarter: 2012Q2

REPORT INFORMATION
  Report Type: 
  Country: None (occurrence: None)
  Receive Date: 20120605
  Receipt Date: 20120605
  Transmission Date: 20120825
  Serious: Yes (Hospitalization)
  Sender: FDA-Public Use
  Company Number: None

PATIENT
  Age: 24 Year
  Sex: Male
  Weight: 70.3075 kg

DRUGS (1)
  1. IBUPROFEN [Suspect]
     Indication: SINUSITIS
     Dosage: 800 MG 3 PER DAY X10
     Dates: start: 20120401, end: 20120415

REACTIONS (2)
  - PEPTIC ULCER HAEMORRHAGE [None]
  - HAEMORRHAGE [None]
